FAERS Safety Report 9677518 (Version 4)
Quarter: 2014Q1

REPORT INFORMATION
  Report Type: Spontaneous
  Country: GB (occurrence: GB)
  Receive Date: 20131108
  Receipt Date: 20140124
  Transmission Date: 20141002
  Serious: Yes (Death, Other)
  Sender: FDA-Public Use
  Company Number: PHFR2013GB006314

PATIENT
  Age: 64 Year
  Sex: Male

DRUGS (4)
  1. CLOZARIL [Suspect]
     Indication: SCHIZOPHRENIA
     Dosage: 300 MG
     Route: 048
     Dates: start: 20010701
  2. RISPERIDONE [Concomitant]
     Indication: SCHIZOPHRENIA
     Dosage: 7 MG
     Route: 048
  3. TRIHEXYPHENIDYL [Concomitant]
     Dosage: 1 MG, BID
     Route: 048
  4. SODIUM VALPROATE [Concomitant]
     Indication: CONVULSION
     Dosage: 1300 MG
     Route: 048

REACTIONS (3)
  - Haemoptysis [Fatal]
  - Pneumonia aspiration [Fatal]
  - Haematemesis [Unknown]
